FAERS Safety Report 17463789 (Version 1)
Quarter: 2020Q1

REPORT INFORMATION
  Report Type: Spontaneous
  Country: FR (occurrence: FR)
  Receive Date: 20200226
  Receipt Date: 20200226
  Transmission Date: 20200409
  Serious: Yes (Other)
  Sender: FDA-Public Use
  Company Number: FR-US-PROVELL PHARMACEUTICALS LLC-8198677

PATIENT
  Age: 48 Year
  Sex: Female

DRUGS (8)
  1. LEVOTHYROX NF [Suspect]
     Active Substance: LEVOTHYROXINE SODIUM
     Dosage: 25 (UNSPECIFIED UNITS)
  2. OMEPRAZOLE. [Concomitant]
     Active Substance: OMEPRAZOLE
     Indication: PRODUCT USED FOR UNKNOWN INDICATION
     Dates: start: 20170511
  3. LEVOTHYROX NF [Suspect]
     Active Substance: LEVOTHYROXINE SODIUM
     Dosage: 125 (UNSPECIFIED UNITS)
     Dates: start: 2017
  4. AERIUS (DESLORATADINE) [Concomitant]
     Active Substance: DESLORATADINE
     Indication: PRODUCT USED FOR UNKNOWN INDICATION
     Dosage: LONG TERM
     Route: 048
     Dates: start: 20170901
  5. LEVOTHYROX NF [Suspect]
     Active Substance: LEVOTHYROXINE SODIUM
     Dosage: 150 (UNSPECIFIED UNITS)
     Dates: start: 2017
  6. SPAGULAX [Concomitant]
     Active Substance: PLANTAGO OVATA SEED
     Indication: PRODUCT USED FOR UNKNOWN INDICATION
     Dates: start: 20170511
  7. LEVOTHYROX NF [Suspect]
     Active Substance: LEVOTHYROXINE SODIUM
     Indication: HYPOTHYROIDISM
     Route: 048
     Dates: end: 20170919
  8. ECONAZOLE ARROW [Concomitant]
     Active Substance: ECONAZOLE
     Indication: PRODUCT USED FOR UNKNOWN INDICATION
     Dates: start: 20170511

REACTIONS (31)
  - Anxiety [Unknown]
  - Non-cardiac chest pain [Recovering/Resolving]
  - Asthenia [Recovering/Resolving]
  - Gastrointestinal disorder [Recovering/Resolving]
  - Dry skin [Unknown]
  - Arthralgia [Recovering/Resolving]
  - Feeling jittery [Recovering/Resolving]
  - Social avoidant behaviour [Recovering/Resolving]
  - Rheumatic disorder [Recovering/Resolving]
  - Mental fatigue [Unknown]
  - Irritability [Recovering/Resolving]
  - Behaviour disorder [Recovering/Resolving]
  - Insomnia [Recovered/Resolved]
  - Confusional state [Recovering/Resolving]
  - Blood thyroid stimulating hormone increased [Recovered/Resolved]
  - Disturbance in attention [Recovering/Resolving]
  - Oral lichen planus [Unknown]
  - Crying [Unknown]
  - Alopecia [Unknown]
  - Suicidal ideation [Unknown]
  - Mood swings [Recovered/Resolved]
  - Memory impairment [Recovering/Resolving]
  - Pain in extremity [Recovering/Resolving]
  - Constipation [Unknown]
  - Anger [Recovered/Resolved]
  - Impaired work ability [Recovering/Resolving]
  - Influenza like illness [Recovering/Resolving]
  - Weight increased [Recovering/Resolving]
  - Back pain [Recovering/Resolving]
  - Pollakiuria [Unknown]
  - Muscle spasms [Recovering/Resolving]

NARRATIVE: CASE EVENT DATE: 2017
